FAERS Safety Report 5262436-9 (Version None)
Quarter: 2007Q1

REPORT INFORMATION
  Report Type: 
  Country: None (occurrence: None)
  Receive Date: 20070312
  Receipt Date: 20070305
  Transmission Date: 20070707
  Serious: Yes (Other)
  Sender: FDA-Public Use
  Company Number: BR-JNJFOC-20070301884

PATIENT
  Age: 21 Year
  Sex: Male
  Weight: 52 kg

DRUGS (2)
  1. TYLENOL (CAPLET) [Suspect]
     Route: 048
  2. TYLENOL (CAPLET) [Suspect]
     Indication: HEADACHE
     Route: 048

REACTIONS (4)
  - DYSPNOEA [None]
  - FACE OEDEMA [None]
  - RASH GENERALISED [None]
  - WRONG TECHNIQUE IN DRUG USAGE PROCESS [None]
